FAERS Safety Report 17748289 (Version 1)
Quarter: 2020Q2

REPORT INFORMATION
  Report Type: Report from Study
  Country: None (occurrence: US)
  Receive Date: 20200506
  Receipt Date: 20200506
  Transmission Date: 20200714
  Serious: Yes (Hospitalization, Other)
  Sender: FDA-Public Use
  Company Number: US-ABBVIE-19K-163-2935615-00

PATIENT
  Age: 38 Year
  Sex: Female
  Weight: 108.51 kg

DRUGS (3)
  1. HUMIRA [Suspect]
     Active Substance: ADALIMUMAB
     Route: 058
     Dates: start: 20200422
  2. HUMIRA [Suspect]
     Active Substance: ADALIMUMAB
     Indication: HIDRADENITIS
     Route: 058
  3. HUMIRA [Suspect]
     Active Substance: ADALIMUMAB
     Route: 058
     Dates: end: 201911

REACTIONS (23)
  - Subcutaneous abscess [Recovered/Resolved]
  - Vertigo [Recovering/Resolving]
  - Drug ineffective [Not Recovered/Not Resolved]
  - Nosocomial infection [Recovered/Resolved]
  - Back pain [Recovered/Resolved]
  - Vaginal abscess [Not Recovered/Not Resolved]
  - Breast abscess [Recovered/Resolved]
  - Abdominal abscess [Recovered/Resolved]
  - Peripheral swelling [Recovered/Resolved]
  - Heart rate increased [Not Recovered/Not Resolved]
  - Mental disorder [Unknown]
  - Anxiety [Not Recovered/Not Resolved]
  - Arthropathy [Not Recovered/Not Resolved]
  - Arthralgia [Recovered/Resolved]
  - Subcutaneous abscess [Not Recovered/Not Resolved]
  - Vertigo [Recovered/Resolved]
  - Breast abscess [Recovered/Resolved]
  - Dyskinesia [Not Recovered/Not Resolved]
  - Wound [Unknown]
  - Back pain [Not Recovered/Not Resolved]
  - Animal scratch [Unknown]
  - Groin abscess [Recovered/Resolved]
  - Cellulitis [Recovered/Resolved]

NARRATIVE: CASE EVENT DATE: 201909
